FAERS Safety Report 9851105 (Version 1)
Quarter: 2014Q1

REPORT INFORMATION
  Report Type: Spontaneous
  Country: US (occurrence: US)
  Receive Date: 20140128
  Receipt Date: 20140128
  Transmission Date: 20141002
  Serious: Yes (Hospitalization, Other)
  Sender: FDA-Public Use
  Company Number: US-BAXTER-2014BAX003272

PATIENT
  Sex: Male

DRUGS (2)
  1. DIANEAL PD2 (ULTRABAG) [Suspect]
     Indication: PERITONEAL DIALYSIS
     Route: 033
     Dates: start: 20131206, end: 20140110
  2. DIANEAL PD2 (ULTRABAG) [Suspect]
     Route: 033
     Dates: start: 20140116

REACTIONS (3)
  - Groin pain [Recovered/Resolved]
  - Condition aggravated [Recovered/Resolved]
  - Oedema [Not Recovered/Not Resolved]
